FAERS Safety Report 4388521-1 (Version None)
Quarter: 2004Q2

REPORT INFORMATION
  Report Type: 
  Country: None (occurrence: None)
  Receive Date: 20040625
  Receipt Date: 20040618
  Transmission Date: 20050107
  Serious: Yes (Other)
  Sender: FDA-Public Use
  Company Number: JP-JNJFOC-20040600405

PATIENT
  Age: 82 Year
  Sex: Male

DRUGS (1)
  1. ITRACONAZOLE [Suspect]
     Indication: DRUG USE FOR UNKNOWN INDICATION
     Dosage: 100 MG,  1 IN 1 DAY, ORAL
     Route: 048

REACTIONS (1)
  - THROMBOCYTOPENIA [None]
